FAERS Safety Report 14163443 (Version 3)
Quarter: 2018Q1

REPORT INFORMATION
  Report Type: Report from Study
  Country: JP (occurrence: JP)
  Receive Date: 20171107
  Receipt Date: 20180208
  Transmission Date: 20180508
  Serious: Yes (Hospitalization)
  Sender: FDA-Public Use
  Company Number: JP-ASTRAZENECA-2016SE76881

PATIENT
  Age: 21364 Day
  Sex: Female

DRUGS (5)
  1. LOXONIN [Concomitant]
     Active Substance: LOXOPROFEN SODIUM
     Indication: HEADACHE
     Dosage: 60.0MG AS REQUIRED
     Route: 048
     Dates: end: 20160809
  2. MUCOSTA [Concomitant]
     Active Substance: REBAMIPIDE
     Indication: PROPHYLAXIS AGAINST GASTROINTESTINAL ULCER
     Dosage: 100.0MG AS REQUIRED
     Route: 048
     Dates: end: 20160809
  3. PROTOPIC [Concomitant]
     Active Substance: TACROLIMUS
     Indication: DRY SKIN
     Dosage: AS REQUIRED
     Route: 003
  4. ZOLPIDEM [Concomitant]
     Active Substance: ZOLPIDEM\ZOLPIDEM TARTRATE
     Indication: INSOMNIA
     Dosage: 10.0MG AS REQUIRED
     Route: 048
  5. MEDI4736 [Suspect]
     Active Substance: DURVALUMAB
     Indication: BLADDER TRANSITIONAL CELL CARCINOMA STAGE 0
     Route: 042
     Dates: start: 20160614, end: 20160614

REACTIONS (1)
  - Drug-induced liver injury [Recovered/Resolved]

NARRATIVE: CASE EVENT DATE: 20160713
